FAERS Safety Report 8561331-7 (Version None)
Quarter: 2012Q3

REPORT INFORMATION
  Report Type: 
  Country: None (occurrence: None)
  Receive Date: 20120802
  Receipt Date: 20120711
  Transmission Date: 20120928
  Serious: No
  Sender: FDA-Public Use
  Company Number: US-ASTRAZENECA-2012SE48142

PATIENT
  Age: 29632 Day
  Sex: Female
  Weight: 54.4 kg

DRUGS (3)
  1. CRESTOR [Suspect]
     Route: 048
  2. NIASPAN [Concomitant]
     Indication: ANGIOPATHY
  3. CRESTOR [Suspect]
     Indication: ATHEROSCLEROSIS PROPHYLAXIS
     Route: 048

REACTIONS (4)
  - MUSCLE SPASMS [None]
  - OFF LABEL USE [None]
  - BLOOD CHOLESTEROL DECREASED [None]
  - SLEEP DISORDER DUE TO A GENERAL MEDICAL CONDITION [None]
